FAERS Safety Report 18837699 (Version 1)
Quarter: 2021Q1

REPORT INFORMATION
  Report Type: Other
  Country: CN (occurrence: CN)
  Receive Date: 20210203
  Receipt Date: 20210203
  Transmission Date: 20210419
  Serious: Yes (Other)
  Sender: FDA-Public Use
  Company Number: CN-ROCHE-2740911

PATIENT

DRUGS (1)
  1. RITUXIMAB. [Suspect]
     Active Substance: RITUXIMAB
     Indication: PRODUCT USED FOR UNKNOWN INDICATION
     Dosage: 100 MG TO 1100 MG
     Route: 041

REACTIONS (56)
  - Hypoxia [Unknown]
  - Atrial fibrillation [Unknown]
  - Deafness [Unknown]
  - Tumour lysis syndrome [Unknown]
  - Hepatocellular injury [Unknown]
  - Skin injury [Unknown]
  - Chills [Unknown]
  - Herpes zoster [Unknown]
  - Oropharyngeal pain [Unknown]
  - Palpitations [Unknown]
  - Hepatitis B DNA increased [Unknown]
  - Laryngeal oedema [Unknown]
  - Pneumocystis jirovecii pneumonia [Unknown]
  - Gastrointestinal haemorrhage [Unknown]
  - Thrombocytopenia [Unknown]
  - Anaphylactic shock [Unknown]
  - Anaphylactoid reaction [Unknown]
  - Laryngospasm [Unknown]
  - Pruritus [Unknown]
  - Cough [Unknown]
  - Cardiac discomfort [Unknown]
  - Abdominal pain [Unknown]
  - Leukopenia [Unknown]
  - Haemoglobin decreased [Unknown]
  - Neutropenia [Unknown]
  - Traumatic lung injury [Unknown]
  - Interstitial lung disease [Unknown]
  - Hepatic function abnormal [Unknown]
  - Renal impairment [Unknown]
  - Asphyxia [Unknown]
  - Rash [Unknown]
  - Skin disorder [Unknown]
  - Dyspnoea [Unknown]
  - Supraventricular tachycardia [Unknown]
  - Chest discomfort [Unknown]
  - Blood pressure decreased [Unknown]
  - Nausea [Unknown]
  - Vomiting [Unknown]
  - Pain in extremity [Unknown]
  - Pneumonia [Unknown]
  - Ascites [Unknown]
  - Electrocardiogram abnormal [Unknown]
  - Hypoaesthesia [Unknown]
  - Myalgia [Unknown]
  - Arrhythmia [Unknown]
  - Seizure [Unknown]
  - Pyrexia [Unknown]
  - Dermatitis [Unknown]
  - Haemorrhage [Unknown]
  - Respiratory failure [Unknown]
  - Myelosuppression [Unknown]
  - Rash erythematous [Unknown]
  - Blood pressure increased [Unknown]
  - Diarrhoea [Unknown]
  - Headache [Unknown]
  - Tremor [Unknown]
